FAERS Safety Report 8931911 (Version 1)
Quarter: 2012Q4

REPORT INFORMATION
  Report Type: 
  Country: JP (occurrence: JP)
  Receive Date: 20121128
  Receipt Date: 20121128
  Transmission Date: 20130627
  Serious: Yes (Other)
  Sender: FDA-Public Use
  Company Number: JP-PFIZER INC-2012296289

PATIENT
  Age: 70 Year

DRUGS (3)
  1. AMLODIN [Suspect]
     Indication: HYPERTENSION
     Dosage: 10 mg, daily
  2. IRBESARTAN [Concomitant]
     Dosage: 200 mg, daily
  3. INDAPAMIDE [Concomitant]
     Dosage: 1 mg, daily

REACTIONS (1)
  - Renal impairment [Recovered/Resolved]
